FAERS Safety Report 8870889 (Version 1)
Quarter: 2012Q4

REPORT INFORMATION
  Report Type: 
  Country: US (occurrence: US)
  Receive Date: 20121023
  Receipt Date: 20121023
  Transmission Date: 20130627
  Serious: No
  Sender: FDA-Public Use
  Company Number: US-AMGEN-USASP2012009893

PATIENT
  Age: 41 Year
  Sex: Female

DRUGS (2)
  1. ENBREL [Suspect]
     Indication: RHEUMATOID ARTHRITIS
     Dosage: UNK mg, qwk
     Route: 058
     Dates: start: 20111213, end: 20120126
  2. TREXALL [Concomitant]
     Dosage: 5 mg, qwk

REACTIONS (2)
  - Herpes zoster [Recovered/Resolved]
  - Tuberculin test positive [Not Recovered/Not Resolved]
